FAERS Safety Report 4289824-1 (Version None)
Quarter: 2004Q1

REPORT INFORMATION
  Report Type: 
  Country: None (occurrence: None)
  Receive Date: 20040209
  Receipt Date: 20031208
  Transmission Date: 20041129
  Serious: No
  Sender: FDA-Public Use
  Company Number: US-GLAXOSMITHKLINE-A0442340A

PATIENT
  Age: 64 Year
  Sex: Female

DRUGS (13)
  1. PAXIL [Suspect]
     Indication: DEPRESSION
     Dosage: 1TAB IN THE MORNING
     Route: 048
  2. THYROID MEDICATION [Concomitant]
  3. HYDROCODONE [Concomitant]
  4. ALLEGRA [Concomitant]
  5. CELEBREX [Concomitant]
  6. IBUPROFEN [Concomitant]
  7. VITAMIN B [Concomitant]
  8. CALCIUM MAGNESIUM [Concomitant]
  9. UNKNOWN MEDICATION [Concomitant]
  10. ENZYME [Concomitant]
  11. FOLIC ACID [Concomitant]
  12. VITAMIN E [Concomitant]
  13. VITAMIN A [Concomitant]

REACTIONS (1)
  - SKIN ODOUR ABNORMAL [None]
